FAERS Safety Report 12995021 (Version 9)
Quarter: 2017Q4

REPORT INFORMATION
  Report Type: Spontaneous
  Country: US (occurrence: US)
  Receive Date: 20161202
  Receipt Date: 20171116
  Transmission Date: 20180320
  Serious: Yes (Hospitalization, Other)
  Sender: FDA-Public Use
  Company Number: US-JNJFOC-20161200760

PATIENT
  Age: 66 Year
  Sex: Male
  Weight: 73.5 kg

DRUGS (15)
  1. ADEMPAS [Suspect]
     Active Substance: RIOCIGUAT
     Indication: PULMONARY HYPERTENSION
     Route: 048
  2. APIXABAN [Concomitant]
     Active Substance: APIXABAN
     Route: 065
  3. ADEMPAS [Suspect]
     Active Substance: RIOCIGUAT
     Indication: PULMONARY HYPERTENSION
     Route: 048
  4. ADEMPAS [Suspect]
     Active Substance: RIOCIGUAT
     Indication: PULMONARY HYPERTENSION
     Route: 048
     Dates: start: 20151023
  5. XARELTO [Suspect]
     Active Substance: RIVAROXABAN
     Indication: PRODUCT USED FOR UNKNOWN INDICATION
     Route: 048
  6. ADEMPAS [Suspect]
     Active Substance: RIOCIGUAT
     Indication: PULMONARY HYPERTENSION
     Route: 048
     Dates: start: 20151023
  7. ADEMPAS [Suspect]
     Active Substance: RIOCIGUAT
     Indication: PULMONARY HYPERTENSION
     Route: 048
     Dates: start: 20150815
  8. ADEMPAS [Suspect]
     Active Substance: RIOCIGUAT
     Indication: PULMONARY HYPERTENSION
     Route: 048
  9. OPSUMIT [Concomitant]
     Active Substance: MACITENTAN
     Route: 065
  10. ADEMPAS [Suspect]
     Active Substance: RIOCIGUAT
     Indication: PULMONARY HYPERTENSION
     Route: 048
  11. ADEMPAS [Suspect]
     Active Substance: RIOCIGUAT
     Indication: PULMONARY HYPERTENSION
     Route: 048
  12. ADEMPAS [Suspect]
     Active Substance: RIOCIGUAT
     Indication: PULMONARY HYPERTENSION
     Route: 048
     Dates: start: 20150815
  13. HYDROCODONE [Concomitant]
     Active Substance: HYDROCODONE
     Indication: BACK DISORDER
     Route: 065
  14. ADEMPAS [Suspect]
     Active Substance: RIOCIGUAT
     Indication: PULMONARY HYPERTENSION
     Route: 048
  15. LYRICA [Concomitant]
     Active Substance: PREGABALIN
     Indication: NEUROPATHY PERIPHERAL
     Route: 065

REACTIONS (29)
  - Traumatic fracture [Unknown]
  - Thinking abnormal [Unknown]
  - Spinal operation [Unknown]
  - Abdominal discomfort [Unknown]
  - Asthenia [Unknown]
  - Gun shot wound [Unknown]
  - Urinary tract infection [Not Recovered/Not Resolved]
  - Lung transplant [Unknown]
  - Malaise [Unknown]
  - Dehydration [Unknown]
  - Dysgraphia [Unknown]
  - Urinary tract infection [Unknown]
  - Nausea [Unknown]
  - Gastric disorder [Unknown]
  - Vomiting [Unknown]
  - Malaise [Unknown]
  - Amnesia [Unknown]
  - Reading disorder [Unknown]
  - Retching [Unknown]
  - Headache [Unknown]
  - Balance disorder [Unknown]
  - Traumatic haemorrhage [Unknown]
  - Abdominal pain [Unknown]
  - Neuropathy peripheral [Unknown]
  - Feeling abnormal [Unknown]
  - Memory impairment [Unknown]
  - Loss of consciousness [Unknown]
  - Fluid retention [Unknown]
  - Fall [Unknown]

NARRATIVE: CASE EVENT DATE: 20161031
